FAERS Safety Report 11253402 (Version 4)
Quarter: 2016Q2

REPORT INFORMATION
  Report Type: Report from Study
  Country: BR (occurrence: BR)
  Receive Date: 20150709
  Receipt Date: 20160415
  Transmission Date: 20160815
  Serious: Yes (Life-Threatening, Hospitalization, Disabling)
  Sender: FDA-Public Use
  Company Number: BR-ROCHE-1605865

PATIENT
  Sex: Female
  Weight: 48 kg

DRUGS (3)
  1. XOLAIR [Suspect]
     Active Substance: OMALIZUMAB
     Indication: ASTHMA
     Route: 058
     Dates: start: 20140904
  2. XOLAIR [Suspect]
     Active Substance: OMALIZUMAB
     Indication: POLYP
     Route: 058
     Dates: start: 201410
  3. XOLAIR [Suspect]
     Active Substance: OMALIZUMAB
     Indication: RHINITIS ALLERGIC

REACTIONS (24)
  - Haemoptysis [Unknown]
  - Fatigue [Recovering/Resolving]
  - Syncope [Not Recovered/Not Resolved]
  - Gait disturbance [Not Recovered/Not Resolved]
  - Cholelithiasis [Unknown]
  - Pancreatitis [Not Recovered/Not Resolved]
  - General physical health deterioration [Not Recovered/Not Resolved]
  - Asthma [Recovering/Resolving]
  - Malaise [Not Recovered/Not Resolved]
  - Frequent bowel movements [Unknown]
  - Swelling [Unknown]
  - Pancreatic disorder [Unknown]
  - Weight decreased [Not Recovered/Not Resolved]
  - Body height abnormal [Unknown]
  - Nervousness [Unknown]
  - Uterine disorder [Unknown]
  - Palpitations [Not Recovered/Not Resolved]
  - Dyspepsia [Not Recovered/Not Resolved]
  - Productive cough [Recovering/Resolving]
  - Asthenia [Unknown]
  - Blood pressure increased [Unknown]
  - Apparent death [Unknown]
  - Tension [Unknown]
  - Blood glucose increased [Unknown]
